FAERS Safety Report 6410787-4 (Version None)
Quarter: 2009Q4

REPORT INFORMATION
  Report Type: 
  Country: None (occurrence: None)
  Receive Date: 20091016
  Receipt Date: 20091012
  Transmission Date: 20100525
  Serious: Yes (Hospitalization)
  Sender: FDA-Public Use
  Company Number: 2009-190394-NL

PATIENT
  Age: 28 Year
  Sex: Female
  Weight: 91.2 kg

DRUGS (5)
  1. NUVARING [Suspect]
     Indication: CONTRACEPTION
     Dosage: 1 DF; QM; VAG
     Route: 067
     Dates: start: 20060310, end: 20080408
  2. ALBUTEROL [Concomitant]
  3. CLARITHROMYCIN [Concomitant]
  4. AMOXICILLIN [Concomitant]
  5. PREVACID [Concomitant]

REACTIONS (22)
  - BACK PAIN [None]
  - COAGULOPATHY [None]
  - COMPULSIONS [None]
  - CRYING [None]
  - DEHYDRATION [None]
  - DIZZINESS [None]
  - HAEMORRHAGE [None]
  - HEADACHE [None]
  - HYPOAESTHESIA [None]
  - INTRACRANIAL VENOUS SINUS THROMBOSIS [None]
  - IRRITABILITY [None]
  - MOOD SWINGS [None]
  - MUSCULAR WEAKNESS [None]
  - MUSCULOSKELETAL STIFFNESS [None]
  - NAUSEA [None]
  - PAIN [None]
  - PARAESTHESIA [None]
  - TRANSVERSE SINUS THROMBOSIS [None]
  - VARICOSE VEIN [None]
  - VENOUS ANGIOMA OF BRAIN [None]
  - VISION BLURRED [None]
  - VOMITING [None]
